FAERS Safety Report 10945930 (Version 3)
Quarter: 2015Q4

REPORT INFORMATION
  Report Type: Spontaneous
  Country: US (occurrence: US)
  Receive Date: 20150323
  Receipt Date: 20151020
  Transmission Date: 20160304
  Serious: Yes (Hospitalization)
  Sender: FDA-Public Use
  Company Number: US-BAYER-2015-045183

PATIENT
  Age: 22 Year
  Sex: Female
  Weight: 52.61 kg

DRUGS (2)
  1. FLUCONAZOLE. [Concomitant]
     Active Substance: FLUCONAZOLE
     Indication: VULVOVAGINAL CANDIDIASIS
     Dosage: UNK
  2. MIRENA [Suspect]
     Active Substance: LEVONORGESTREL
     Indication: CONTRACEPTION
     Dosage: 20 MCG/24HR, CONT
     Route: 015
     Dates: start: 20120710, end: 20140425

REACTIONS (9)
  - Abdominal pain lower [None]
  - Injury [None]
  - Emotional distress [None]
  - Menstruation irregular [None]
  - Uterine perforation [None]
  - Pain [None]
  - Bacterial infection [None]
  - Device dislocation [None]
  - Menorrhagia [None]

NARRATIVE: CASE EVENT DATE: 201207
